FAERS Safety Report 6760959-4 (Version None)
Quarter: 2010Q2

REPORT INFORMATION
  Report Type: 
  Country: None (occurrence: None)
  Receive Date: 20100608
  Receipt Date: 20100528
  Transmission Date: 20101027
  Serious: Yes (Other)
  Sender: FDA-Public Use
  Company Number: US-SANOFI-AVENTIS-2010SA027161

PATIENT
  Sex: Female

DRUGS (8)
  1. LANTUS [Suspect]
     Indication: TYPE 2 DIABETES MELLITUS
     Dosage: 12-13 UNITS DOSE:12 UNIT(S)
     Route: 058
     Dates: start: 20100201, end: 20100223
  2. LANTUS [Suspect]
     Dosage: DOSE:12 UNIT(S)
     Route: 058
     Dates: start: 20100503
  3. OPTICLICK [Suspect]
  4. NOVOLOG [Concomitant]
     Indication: DIABETES MELLITUS
     Dosage: SLIDING SCALE QID
     Dates: start: 20100213
  5. RISPERDAL [Concomitant]
     Indication: SCHIZOPHRENIA
     Dosage: 2 MG AM, 4 MG HS
     Dates: start: 19990801
  6. ATIVAN [Concomitant]
     Dosage: 1 MG TID (PRN)
     Dates: start: 19870801
  7. LOPRESSOR [Concomitant]
     Indication: HYPERTENSION
  8. LOPRESSOR [Concomitant]
     Indication: ARRHYTHMIA

REACTIONS (1)
  - VASCULAR GRAFT [None]
